FAERS Safety Report 5259956-X (Version None)
Quarter: 2007Q1

REPORT INFORMATION
  Report Type: 
  Country: None (occurrence: None)
  Receive Date: 20070309
  Receipt Date: 20070228
  Transmission Date: 20070707
  Serious: Yes (Other)
  Sender: FDA-Public Use
  Company Number: GB-GLAXOSMITHKLINE-B0461180A

PATIENT
  Age: 25 Year
  Sex: Female

DRUGS (5)
  1. LAMOTRIGINE [Suspect]
     Indication: EPILEPSY
     Dosage: 500MG SINGLE DOSE
     Route: 048
  2. DOXYCYCLINE [Concomitant]
     Indication: INFECTION
     Dosage: 100MG TWICE PER DAY
     Route: 048
     Dates: start: 20041211
  3. EPILIM [Concomitant]
     Indication: EPILEPSY
     Dosage: 1G TWICE PER DAY
     Route: 048
  4. KEPPRA [Concomitant]
     Indication: EPILEPSY
     Dosage: 250MG TWICE PER DAY
     Route: 048
  5. METRONIDAZOLE [Concomitant]
     Indication: INFECTION
     Dosage: 400MG THREE TIMES PER DAY
     Route: 048
     Dates: start: 20041211

REACTIONS (4)
  - HYPOKALAEMIA [None]
  - OVERDOSE [None]
  - PRURITUS [None]
  - SOMNOLENCE [None]
